FAERS Safety Report 17287634 (Version 1)
Quarter: 2020Q1

REPORT INFORMATION
  Report Type: Spontaneous
  Country: US (occurrence: US)
  Receive Date: 20200120
  Receipt Date: 20200120
  Transmission Date: 20200409
  Serious: Yes (Other)
  Sender: FDA-Public Use
  Company Number: US-BRISTOL-MYERS SQUIBB COMPANY-BMS-2020-003455

PATIENT
  Sex: Male
  Weight: 97 kg

DRUGS (1)
  1. ELIQUIS [Suspect]
     Active Substance: APIXABAN
     Indication: EMBOLISM VENOUS
     Dosage: UNK, ONE PILL DAILY
     Route: 048
     Dates: start: 201909

REACTIONS (2)
  - Sciatica [Unknown]
  - Off label use [Unknown]
